FAERS Safety Report 7910234-7 (Version None)
Quarter: 2011Q4

REPORT INFORMATION
  Report Type: 
  Country: None (occurrence: None)
  Receive Date: 20111111
  Receipt Date: 20111104
  Transmission Date: 20120403
  Serious: Yes (Other)
  Sender: FDA-Public Use
  Company Number: GB-JNJFOC-20111000297

PATIENT
  Age: 63 Year
  Sex: Male
  Weight: 84 kg

DRUGS (10)
  1. TRAMADOL HYDROCHLORIDE [Suspect]
     Route: 060
     Dates: start: 20110913, end: 20110913
  2. ALBUTEROL SULFATE AUTOHALER [Concomitant]
     Route: 065
     Dates: start: 20110526
  3. ACETAMINOPHEN AND CODEINE PHOSPHATE [Concomitant]
     Route: 065
     Dates: start: 20110907, end: 20110914
  4. PERINDOPRIL ERBUMINE [Concomitant]
     Route: 065
     Dates: start: 20110331, end: 20110629
  5. AMITRIPTYLINE HCL [Concomitant]
     Route: 065
     Dates: start: 20110909
  6. DICLOFENAC SODIUM [Concomitant]
     Route: 065
     Dates: start: 20110907
  7. ACETAMINOPHEN [Concomitant]
     Route: 065
     Dates: start: 20110913
  8. TRAMADOL HYDROCHLORIDE [Suspect]
     Indication: SCIATICA
     Dosage: 2-3 TABLETS
     Route: 060
     Dates: start: 20110913
  9. BENDROFLUMETHIAZIDE [Concomitant]
     Route: 065
     Dates: start: 20110526, end: 20110818
  10. SALMETEROL [Concomitant]
     Route: 065
     Dates: start: 20110526, end: 20110625

REACTIONS (3)
  - DIZZINESS [None]
  - PALPITATIONS [None]
  - PRURITUS [None]
